FAERS Safety Report 12679312 (Version 1)
Quarter: 2016Q3

REPORT INFORMATION
  Report Type: Spontaneous
  Country: DE (occurrence: DE)
  Receive Date: 20160824
  Receipt Date: 20160824
  Transmission Date: 20161109
  Serious: Yes (Death)
  Sender: FDA-Public Use
  Company Number: DE-BAYER-2016-162574

PATIENT
  Age: 71 Year
  Sex: Female

DRUGS (65)
  1. ASPIRIN. [Suspect]
     Active Substance: ASPIRIN
     Indication: THROMBOSIS PROPHYLAXIS
     Dosage: 100 MG, QD
     Route: 048
     Dates: start: 20040729, end: 20041107
  2. METHIMAZOLE. [Suspect]
     Active Substance: METHIMAZOLE
     Indication: HYPERTHYROIDISM
     Dosage: 50 MG, UNK
     Route: 048
     Dates: start: 20041006, end: 20041105
  3. METOPROLOL. [Suspect]
     Active Substance: METOPROLOL
     Dosage: 200 MG, QD
     Route: 048
     Dates: start: 20041101, end: 20041107
  4. BROTIZOLAM [Suspect]
     Active Substance: BROTIZOLAM
     Indication: SLEEP DISORDER
     Dosage: 1 DF, QD
     Route: 048
     Dates: start: 20041110, end: 20041110
  5. POTASSIUM CHLORIDE. [Suspect]
     Active Substance: POTASSIUM CHLORIDE
     Indication: HYPOKALAEMIA
     Dosage: UNK
     Dates: start: 20041101, end: 20041101
  6. POTASSIUM CITRATE. [Suspect]
     Active Substance: POTASSIUM CITRATE
     Indication: HYPOKALAEMIA
     Dosage: 1 DF, QD
     Route: 048
     Dates: start: 20041015, end: 20041020
  7. PREDNISOLONE SODIUM SUCCINATE [Concomitant]
     Active Substance: PREDNISOLONE SODIUM SUCCINATE
     Dosage: UNK
     Dates: start: 20041105, end: 20041110
  8. PROMETHAZINE HYDROCHLORIDE. [Concomitant]
     Active Substance: PROMETHAZINE HYDROCHLORIDE
     Dosage: 5 DF, BID
     Dates: start: 20041105, end: 20041108
  9. TAVANIC [Concomitant]
     Active Substance: LEVOFLOXACIN
     Dosage: 500 MG, QD
     Dates: start: 20041107, end: 20041110
  10. DERMATOP [Concomitant]
     Active Substance: PREDNICARBATE
     Dosage: 2 DF, QD
     Dates: start: 20041110, end: 20041110
  11. ZYRTEC [Concomitant]
     Active Substance: CETIRIZINE HYDROCHLORIDE
     Dosage: 2 DF, QD
     Dates: start: 20041110, end: 20041110
  12. CLEXANE [Suspect]
     Active Substance: ENOXAPARIN SODIUM
     Indication: THROMBOSIS
     Dosage: 40 ML, BID
     Route: 058
     Dates: start: 20041011, end: 20041028
  13. MELPERONE HYDROCHLORIDE [Suspect]
     Active Substance: MELPERONE HYDROCHLORIDE
     Indication: SLEEP DISORDER
     Dosage: 1 ML, QD
     Route: 048
     Dates: start: 20041102, end: 20041107
  14. PANTOZOL [Suspect]
     Active Substance: PANTOPRAZOLE SODIUM
     Indication: GASTROINTESTINAL ULCER
     Dosage: 40 MG, QD
     Route: 048
     Dates: start: 20041007, end: 20041031
  15. POTASSIUM CHLORIDE. [Suspect]
     Active Substance: POTASSIUM CHLORIDE
     Indication: HYPOKALAEMIA
     Dosage: 40 MMOL, QD
     Route: 042
     Dates: start: 20041027, end: 20041027
  16. RAMIPRIL. [Suspect]
     Active Substance: RAMIPRIL
     Indication: ESSENTIAL HYPERTENSION
     Dosage: 2.5 MG, QD
     Route: 048
     Dates: start: 20041007, end: 20041031
  17. DIFLUCAN [Concomitant]
     Active Substance: FLUCONAZOLE
     Dosage: 1 DF, QD
     Dates: start: 20041106, end: 20041110
  18. PERFALGAN [Concomitant]
     Active Substance: ACETAMINOPHEN
     Dosage: 1 G, UNK
     Dates: start: 20041014, end: 20041014
  19. TAZOBACTAM [Concomitant]
     Active Substance: TAZOBACTAM
     Dosage: 4.5 MG, TID
     Dates: start: 20041007, end: 20041015
  20. FUROSEMIDE. [Suspect]
     Active Substance: FUROSEMIDE
     Indication: POLYURIA
     Dosage: 40 MG, QD
     Route: 042
     Dates: start: 20041102, end: 20041111
  21. FERROUS SULFATE. [Suspect]
     Active Substance: FERROUS SULFATE
     Indication: MINERAL SUPPLEMENTATION
     Dosage: 1 DF, QD
     Route: 048
     Dates: start: 20041103, end: 20041107
  22. HYDROCHLOROTHIAZIDE. [Suspect]
     Active Substance: HYDROCHLOROTHIAZIDE
     Indication: ESSENTIAL HYPERTENSION
     Dosage: 25 MG, QD
     Route: 048
     Dates: start: 20041012, end: 20041031
  23. BROTIZOLAM [Suspect]
     Active Substance: BROTIZOLAM
     Indication: SLEEP DISORDER
     Dosage: 1 DF, QD
     Route: 048
     Dates: start: 20041015, end: 20041024
  24. BROTIZOLAM [Suspect]
     Active Substance: BROTIZOLAM
     Indication: SLEEP DISORDER
     Dosage: 1 DF, QD
     Route: 048
     Dates: start: 20041103, end: 20041103
  25. CLARITHROMYCIN. [Suspect]
     Active Substance: CLARITHROMYCIN
     Indication: PNEUMONIA
     Dosage: 250 MG, UNK
     Route: 048
     Dates: start: 20041018, end: 20041024
  26. HUMALOG [Suspect]
     Active Substance: INSULIN LISPRO
     Indication: DIABETES MELLITUS
     Dosage: 1 DF, TID
     Route: 058
     Dates: start: 20040729, end: 20041110
  27. LORAZEPAM. [Suspect]
     Active Substance: LORAZEPAM
     Indication: SLEEP DISORDER
     Dosage: 1 DF, QD
     Route: 048
     Dates: start: 20041030, end: 20041030
  28. SORTIS [Suspect]
     Active Substance: ATORVASTATIN
     Indication: HYPERCHOLESTEROLAEMIA
     Dosage: 40 MG, QD
     Route: 048
     Dates: start: 20040729, end: 20041102
  29. DIGITOXIN [Suspect]
     Active Substance: DIGITOXIN
     Indication: CARDIAC FAILURE
     Dosage: UNK
     Route: 048
     Dates: start: 20041103, end: 20041111
  30. DEXTROSE. [Suspect]
     Active Substance: DEXTROSE
     Indication: HYPOGLYCAEMIA
     Dosage: UNK
     Route: 042
     Dates: start: 20041108, end: 20041108
  31. METOCLOPRAMIDE. [Suspect]
     Active Substance: METOCLOPRAMIDE
     Indication: NAUSEA
     Dosage: UNK GTT, QD
     Route: 048
     Dates: start: 20041025, end: 20041028
  32. POTASSIUM CITRATE. [Suspect]
     Active Substance: POTASSIUM CITRATE
     Indication: HYPOKALAEMIA
     Dosage: 1 DF, QD
     Route: 048
     Dates: start: 20041023, end: 20041025
  33. RAMIPRIL. [Suspect]
     Active Substance: RAMIPRIL
     Indication: ESSENTIAL HYPERTENSION
     Dosage: 5 DF, QD
     Route: 048
     Dates: start: 20041101, end: 20041102
  34. HALOPERIDOL. [Concomitant]
     Active Substance: HALOPERIDOL
     Dosage: 20 GTT, BID
     Dates: start: 20041104, end: 20041105
  35. DEXTROSE. [Suspect]
     Active Substance: DEXTROSE
     Indication: HYPOGLYCAEMIA
     Dosage: UNK
     Route: 042
     Dates: start: 20041102, end: 20041102
  36. LANTUS [Suspect]
     Active Substance: INSULIN GLARGINE
     Indication: DIABETES MELLITUS
     Dosage: UNK
     Route: 058
     Dates: start: 20040729, end: 20041110
  37. METOCLOPRAMIDE. [Suspect]
     Active Substance: METOCLOPRAMIDE
     Indication: NAUSEA
     Dosage: UNK
     Route: 048
     Dates: start: 20041023, end: 20041023
  38. PIPAMPERONE [Suspect]
     Active Substance: PIPAMPERONE
     Indication: DISORIENTATION
     Dosage: 1 DF, QD
     Route: 048
     Dates: start: 20041103, end: 20041104
  39. POTASSIUM CHLORIDE. [Suspect]
     Active Substance: POTASSIUM CHLORIDE
     Indication: HYPOKALAEMIA
     Dosage: UNK
     Dates: start: 20041025, end: 20041027
  40. TOREM [Suspect]
     Active Substance: TORSEMIDE
     Indication: RENAL FAILURE
     Dosage: UNK
     Route: 048
     Dates: start: 20041012, end: 20041031
  41. TOREM [Suspect]
     Active Substance: TORSEMIDE
     Indication: RENAL FAILURE
     Dosage: UNK
     Route: 048
     Dates: start: 20041102, end: 20041105
  42. FENISTIL [Concomitant]
     Active Substance: DIMETHINDENE
     Dosage: 1 DF, UNK
     Dates: start: 20041105, end: 20041105
  43. MORPHINE [Concomitant]
     Active Substance: MORPHINE
     Dosage: 1 DF, BID
     Dates: start: 20041106, end: 20041109
  44. NOVALGIN [Concomitant]
     Active Substance: METAMIZOLE SODIUM
     Dosage: 20 GTT, QD
     Dates: start: 20041017, end: 20041017
  45. SODIUM CHLORIDE. [Suspect]
     Active Substance: SODIUM CHLORIDE
     Indication: FLUID REPLACEMENT
     Dosage: 500 ML, QD
     Route: 042
     Dates: start: 20041024, end: 20041027
  46. DIGITOXIN [Suspect]
     Active Substance: DIGITOXIN
     Indication: CARDIAC FAILURE
     Dosage: UNK
     Route: 048
     Dates: start: 20041014, end: 20041027
  47. POTASSIUM CHLORIDE. [Suspect]
     Active Substance: POTASSIUM CHLORIDE
     Indication: HYPOKALAEMIA
     Dosage: 40 MMOL, QD
     Route: 042
     Dates: start: 20041102, end: 20041104
  48. POLYSPECTRAN [GRAMICIDIN,NEOMYCIN SULFATE,POLYMYXIN B SULFATE] [Concomitant]
     Active Substance: GRAMICIDIN\NEOMYCIN SULFATE\POLYMYXIN B SULFATE
     Dosage: 1 DF, TID
     Dates: start: 20041108
  49. ELEKTROLYT [ELECTROLYTES NOS] [Suspect]
     Active Substance: ELECTROLYTES NOS
     Indication: FLUID REPLACEMENT
     Dosage: UNK
     Route: 042
     Dates: start: 20041002, end: 20041111
  50. CARBAMAZEPINE. [Suspect]
     Active Substance: CARBAMAZEPINE
     Indication: AGITATION
     Dosage: 5 DF, BID
     Route: 048
     Dates: start: 20041101, end: 20041102
  51. LOPERAMIDE [Suspect]
     Active Substance: LOPERAMIDE
     Indication: DIARRHOEA
     Dosage: 2 DF, QD
     Route: 048
     Dates: start: 20041031, end: 20041031
  52. POTASSIUM CITRATE. [Suspect]
     Active Substance: POTASSIUM CITRATE
     Indication: HYPOKALAEMIA
     Dosage: 1 DF, QD
     Route: 048
     Dates: start: 20001102, end: 20041104
  53. PERFALGAN [Concomitant]
     Active Substance: ACETAMINOPHEN
     Dosage: UNK
     Dates: start: 20041021, end: 20041021
  54. DIGITOXIN [Concomitant]
     Active Substance: DIGITOXIN
     Dosage: 5 DF, QD
     Dates: start: 20041106, end: 20041108
  55. FUROSEMIDE. [Suspect]
     Active Substance: FUROSEMIDE
     Indication: POLYURIA
     Dosage: 10 MG, QD
     Route: 048
     Dates: start: 20041101, end: 20041101
  56. ALLOPURINOL. [Suspect]
     Active Substance: ALLOPURINOL
     Indication: HYPERURICAEMIA
     Dosage: 1 DF, QD
     Route: 048
     Dates: start: 20041024, end: 20041102
  57. BELOC-ZOK [Suspect]
     Active Substance: METOPROLOL SUCCINATE
     Indication: ACUTE MYOCARDIAL INFARCTION
     Dosage: UNK
     Route: 048
     Dates: start: 20041012, end: 20041031
  58. CLOPIDOGREL [Suspect]
     Active Substance: CLOPIDOGREL BISULFATE
     Indication: THROMBOSIS PROPHYLAXIS
     Dosage: 75 MG, BID
     Route: 048
     Dates: start: 20041005, end: 20041107
  59. LORAZEPAM. [Suspect]
     Active Substance: LORAZEPAM
     Indication: SLEEP DISORDER
     Dosage: 1 DF, QD
     Route: 048
     Dates: start: 20041014, end: 20041014
  60. MELPERONE HYDROCHLORIDE [Suspect]
     Active Substance: MELPERONE HYDROCHLORIDE
     Indication: SLEEP DISORDER
     Dosage: 1 ML, QD
     Dates: start: 20041030, end: 20041031
  61. METOCLOPRAMIDE. [Suspect]
     Active Substance: METOCLOPRAMIDE
     Indication: NAUSEA
     Dosage: UNK
     Route: 048
     Dates: start: 20041024, end: 20041025
  62. SODIUM PERCHLORATE MONOHYDRATE [Suspect]
     Active Substance: SODIUM PERCHLORATE MONOHYDRATE
     Indication: HYPERTHYROIDISM
     Dosage: 20 GTT, TID
     Route: 048
     Dates: start: 20041006, end: 20041105
  63. FENISTIL [Concomitant]
     Active Substance: DIMETHINDENE
     Dosage: 1 DF, TID
     Dates: start: 20041104, end: 20041107
  64. FLUNITRAZEPAM [Concomitant]
     Active Substance: FLUNITRAZEPAM
     Dosage: 1 MG, QD
     Dates: start: 20041018, end: 20041018
  65. UNACID [Concomitant]
     Active Substance: AMPICILLIN SODIUM\SULBACTAM SODIUM
     Dosage: 1 G, TID
     Dates: start: 20041106, end: 20041106

REACTIONS (10)
  - Conjunctivitis [Fatal]
  - Lip erosion [Fatal]
  - Nikolsky^s sign [Fatal]
  - Oral disorder [Fatal]
  - Stevens-Johnson syndrome [Fatal]
  - Pruritus [Unknown]
  - Swollen tongue [Unknown]
  - Ocular hyperaemia [Unknown]
  - Purpura [Unknown]
  - Blister [Fatal]

NARRATIVE: CASE EVENT DATE: 20041104
